FAERS Safety Report 4513521-8 (Version None)
Quarter: 2004Q4

REPORT INFORMATION
  Report Type: 
  Country: None (occurrence: None)
  Receive Date: 20041124
  Receipt Date: 20041110
  Transmission Date: 20050328
  Serious: Yes (Death)
  Sender: FDA-Public Use
  Company Number: A01200405742

PATIENT
  Age: 70 Year
  Sex: Male

DRUGS (2)
  1. OXALIPLATIN - SOLUTION [Suspect]
     Indication: COLON CANCER METASTATIC
     Dosage: 50 MG OTHER
     Route: 042
     Dates: start: 20041108, end: 20041108
  2. ANTI-HYPERTENSIVE DRUG [Concomitant]

REACTIONS (8)
  - BLOOD PRESSURE DECREASED [None]
  - BLOOD PRESSURE IMMEASURABLE [None]
  - CARDIAC ARREST [None]
  - CIRCULATORY COLLAPSE [None]
  - COUGH [None]
  - MYOCARDIAL INFARCTION [None]
  - PULSE ABSENT [None]
  - SUDDEN DEATH [None]
